FAERS Safety Report 13662923 (Version 1)
Quarter: 2017Q2

REPORT INFORMATION
  Report Type: Spontaneous
  Country: FR (occurrence: FR)
  Receive Date: 20170619
  Receipt Date: 20170619
  Transmission Date: 20170830
  Serious: Yes (Hospitalization)
  Sender: FDA-Public Use
  Company Number: FR-ROCHE-1947577

PATIENT
  Age: 76 Year
  Sex: Female

DRUGS (4)
  1. CEFTRIAXONE. [Suspect]
     Active Substance: CEFTRIAXONE
     Indication: PYELONEPHRITIS
     Route: 041
     Dates: start: 20170521, end: 20170524
  2. AMIKACINE [Suspect]
     Active Substance: AMIKACIN
     Indication: PYELONEPHRITIS
     Route: 041
     Dates: start: 20170522, end: 20170523
  3. BACTRIM [Suspect]
     Active Substance: SULFAMETHOXAZOLE\TRIMETHOPRIM
     Indication: PYELONEPHRITIS
     Route: 048
     Dates: start: 20170524, end: 20170531
  4. MORPHINE [Suspect]
     Active Substance: MORPHINE
     Indication: SCIATICA
     Dosage: ONGOING
     Route: 048
     Dates: start: 20170524

REACTIONS (1)
  - Hepatitis cholestatic [Not Recovered/Not Resolved]

NARRATIVE: CASE EVENT DATE: 20170525
